FAERS Safety Report 8662743 (Version 3)
Quarter: 2012Q4

REPORT INFORMATION
  Report Type: 
  Country: GR (occurrence: GR)
  Receive Date: 20120712
  Receipt Date: 20121004
  Transmission Date: 20130627
  Serious: Yes (Other)
  Sender: FDA-Public Use
  Company Number: PHHY2012GR059039

PATIENT
  Age: 39 Year
  Sex: Male

DRUGS (2)
  1. TASIGNA [Suspect]
     Dosage: 300 mg, BID
     Route: 048
     Dates: start: 20110304
  2. ANTIHYPERTENSIVES [Concomitant]

REACTIONS (1)
  - Breast hyperplasia [Unknown]
